FAERS Safety Report 5221715-1 (Version None)
Quarter: 2007Q1

REPORT INFORMATION
  Report Type: 
  Country: None (occurrence: None)
  Receive Date: 20070125
  Receipt Date: 20070125
  Transmission Date: 20070707
  Serious: Yes (Hospitalization, Other)
  Sender: FDA-Public Use
  Company Number: None

PATIENT
  Age: 50 Year
  Sex: Female

DRUGS (1)
  1. VANDAZOLE [Suspect]
     Dosage: 70 GRAMS HS X 5 DAYS VAGINAL
     Route: 067
     Dates: start: 20070122, end: 20070124

REACTIONS (4)
  - APPLICATION SITE PAIN [None]
  - MEDICAL DEVICE COMPLICATION [None]
  - VAGINAL HAEMORRHAGE [None]
  - VAGINAL PAIN [None]
